FAERS Safety Report 7991375-5 (Version None)
Quarter: 2011Q4

REPORT INFORMATION
  Report Type: 
  Country: None (occurrence: None)
  Receive Date: 20111219
  Receipt Date: 20111215
  Transmission Date: 20120403
  Serious: Yes (Hospitalization)
  Sender: FDA-Public Use
  Company Number: CA-BAYER-2011-120472

PATIENT
  Age: 86 Year
  Sex: Female

DRUGS (6)
  1. ACETYLSALICYLIC ACID SRT [Suspect]
     Indication: CARDIOVASCULAR EVENT PROPHYLAXIS
     Dosage: 81 MG, QD
     Route: 048
  2. DILTIAZEM HCL [Concomitant]
     Dosage: 120 MG, QD
     Route: 048
  3. VITAMIN D [Concomitant]
     Dosage: 10000 IU, QD
     Route: 048
  4. WARFARIN SODIUM [Suspect]
     Dosage: RE-START AFTER 72 HOURS
     Route: 048
  5. WARFARIN SODIUM [Suspect]
     Indication: ATRIAL FIBRILLATION
     Dosage: 7.5 MG, QD
     Route: 048
  6. VALSARTAN [Concomitant]
     Dosage: 80 MG, QD
     Route: 048

REACTIONS (3)
  - FALL [None]
  - DIZZINESS POSTURAL [None]
  - DUODENAL ULCER HAEMORRHAGE [None]
